FAERS Safety Report 4322603-5 (Version None)
Quarter: 2004Q1

REPORT INFORMATION
  Report Type: 
  Country: None (occurrence: None)
  Receive Date: 20040319
  Receipt Date: 20040309
  Transmission Date: 20041129
  Serious: Yes (Other)
  Sender: FDA-Public Use
  Company Number: 200410167BNE

PATIENT
  Age: 9 Month
  Sex: Male

DRUGS (5)
  1. CIPROFLOXACIN [Suspect]
     Indication: LOWER RESPIRATORY TRACT INFECTION
     Dosage: 40 MG, BID, INTRAVENOUS
     Route: 042
     Dates: start: 20040208, end: 20040216
  2. DOMPERIDONE [Concomitant]
  3. OMEPRAZOLE [Concomitant]
  4. FRUSEMIDE [Concomitant]
  5. METHYLPREDNISOLONE [Concomitant]

REACTIONS (3)
  - BLOOD FIBRINOGEN DECREASED [None]
  - COAGULATION TIME PROLONGED [None]
  - COAGULOPATHY [None]
